FAERS Safety Report 8844396 (Version 1)
Quarter: 2012Q4

REPORT INFORMATION
  Report Type: 
  Country: CA (occurrence: CA)
  Receive Date: 20121017
  Receipt Date: 20121017
  Transmission Date: 20130627
  Serious: Yes (Other)
  Sender: FDA-Public Use
  Company Number: PHHY2012CA091567

PATIENT
  Age: 28 Year
  Sex: Male

DRUGS (3)
  1. SANDOSTATIN LAR [Suspect]
     Indication: COLONIC PSEUDO-OBSTRUCTION
     Dosage: 30 mg, Once a month
     Route: 030
     Dates: start: 20101001
  2. SANDOSTATIN LAR [Suspect]
     Indication: INTESTINAL OBSTRUCTION
  3. SANDOSTATIN [Suspect]
     Route: 058

REACTIONS (1)
  - Liver disorder [Unknown]
